FAERS Safety Report 10096809 (Version 2)
Quarter: 2014Q2

REPORT INFORMATION
  Report Type: Report from Study
  Country: US (occurrence: US)
  Receive Date: 20140422
  Receipt Date: 20140422
  Transmission Date: 20141212
  Serious: Yes (Hospitalization, Other)
  Sender: FDA-Public Use
  Company Number: US-TAKEDA-2014TUS000343

PATIENT
  Age: 72 Year
  Sex: Male
  Weight: 105 kg

DRUGS (19)
  1. BLINDED ALLOPURINOL [Suspect]
     Indication: HYPERURICAEMIA
     Dosage: UNK, QD
     Route: 048
     Dates: start: 20120725, end: 20131230
  2. BLINDED FEBUXOSTAT [Suspect]
     Indication: HYPERURICAEMIA
     Dosage: UNK, QD
     Route: 048
     Dates: start: 20120725, end: 20131230
  3. BLINDED ALLOPURINOL [Suspect]
     Dosage: UNK,QD
     Route: 048
     Dates: start: 20140113
  4. BLINDED FEBUXOSTAT [Suspect]
     Dosage: UNK,QD
     Route: 048
     Dates: start: 20140113
  5. B-12 PLEX WITH VITAMIN C [Concomitant]
     Indication: NUTRITIONAL SUPPLEMENTATION
     Dosage: 1000 MG, QD
     Route: 048
     Dates: start: 2000
  6. CENTRUM SILVER [Concomitant]
     Indication: NUTRITIONAL SUPPLEMENTATION
     Dosage: 1 DF, QD
     Route: 048
     Dates: start: 2000
  7. CLONIDINE [Concomitant]
     Indication: HYPERTENSION
     Dosage: 0.2 MG, BID
     Route: 048
     Dates: start: 1995
  8. FUROSEMIDE [Concomitant]
     Indication: HYPERTENSION
     Dosage: 40 MG, BID
     Route: 048
     Dates: start: 2002
  9. NORVASC [Concomitant]
     Indication: HYPERTENSION
     Dosage: 10 MG, QD
     Route: 048
     Dates: start: 2003
  10. SIMVASTATIN [Concomitant]
     Indication: HYPERCHOLESTEROLAEMIA
     Dosage: 10 MG, QD
     Route: 048
     Dates: start: 2004
  11. TERAZOSIN [Concomitant]
     Indication: BENIGN PROSTATIC HYPERPLASIA
     Dosage: 5 MG, QD
     Route: 048
     Dates: start: 2002
  12. FINASTERIDE [Concomitant]
     Indication: BENIGN PROSTATIC HYPERPLASIA
     Dosage: 5 MG, QD
     Route: 048
     Dates: start: 20091105
  13. FERROUS SULFATE [Concomitant]
     Indication: NUTRITIONAL SUPPLEMENTATION
     Dosage: 325 MG, BID
     Route: 048
     Dates: start: 20090501
  14. FERROUS SULFATE [Concomitant]
     Indication: MINERAL SUPPLEMENTATION
  15. BISACODYL [Concomitant]
     Indication: CONSTIPATION
     Dosage: 5 MG, BID/PRN
     Route: 048
     Dates: start: 20090501
  16. HYDROCODONE/ACETAMINOPHEN          /00607101/ [Concomitant]
     Indication: ARTHRALGIA
     Dosage: 10/500 MG, TID
     Route: 048
     Dates: start: 20120808
  17. HYDROCODONE/ACETAMINOPHEN          /00607101/ [Concomitant]
     Indication: PAIN
     Dosage: 7.5/350 MG, TID
     Route: 048
     Dates: start: 20131010
  18. GABAPENTIN [Concomitant]
     Indication: NEUROPATHY PERIPHERAL
     Dosage: 300 MG, BID
     Route: 048
     Dates: start: 20131008
  19. GABAPENTIN [Concomitant]
     Indication: ARTHRALGIA

REACTIONS (6)
  - Normochromic normocytic anaemia [Not Recovered/Not Resolved]
  - Sepsis [Recovered/Resolved]
  - Pneumonia [Recovered/Resolved]
  - Acute respiratory failure [Recovered/Resolved]
  - Atrial fibrillation [Recovered/Resolved]
  - Pleural effusion [Recovered/Resolved]
